FAERS Safety Report 10173391 (Version 1)
Quarter: 2014Q2

REPORT INFORMATION
  Report Type: Spontaneous
  Country: DE (occurrence: DE)
  Receive Date: 20140515
  Receipt Date: 20140515
  Transmission Date: 20141212
  Serious: Yes (Other)
  Sender: FDA-Public Use
  Company Number: DE-TEVA-481258GER

PATIENT
  Sex: Female

DRUGS (1)
  1. AMOXICILLIN-RATIOPHARM 1000 MG BRAUSETABLETTEN [Suspect]
     Indication: TONSILLITIS
     Route: 048
     Dates: start: 2014

REACTIONS (2)
  - Breast abscess [Unknown]
  - Abscess rupture [Unknown]
